FAERS Safety Report 8733753 (Version 7)
Quarter: 2013Q2

REPORT INFORMATION
  Report Type: Report from Study
  Country: DK (occurrence: DK)
  Receive Date: 20120821
  Receipt Date: 20130424
  Transmission Date: 20140414
  Serious: Yes (Hospitalization, Other)
  Sender: FDA-Public Use
  Company Number: DK-BRISTOL-MYERS SQUIBB COMPANY-16710220

PATIENT
  Age: 57 Year
  Sex: Female

DRUGS (14)
  1. IPILIMUMAB [Suspect]
     Indication: MALIGNANT MELANOMA
     Route: 042
     Dates: start: 20120601
  2. PARACETAMOL [Concomitant]
     Route: 048
     Dates: start: 20120529
  3. ZINACEF [Concomitant]
     Route: 042
     Dates: start: 20120815, end: 20120815
  4. TAVEGYL [Concomitant]
     Route: 048
     Dates: start: 20120608, end: 20120623
  5. PANTOPRAZOLE [Concomitant]
     Route: 048
     Dates: start: 20120626, end: 20120820
  6. MORPHINE [Concomitant]
     Dosage: 15AUG12 TO 16AUG12-10MG-SC
     Route: 048
     Dates: start: 20120626
  7. SOLU-MEDROL [Concomitant]
     Dosage: 13AUG12-14AUG12 IV?23JUN12-23JUN12 ORAL?19JUL12-19JUL12:125MG IV
     Route: 048
     Dates: start: 20120623, end: 20120814
  8. PREDNISOLONE [Concomitant]
     Dosage: 24JUN12-25JUN12:50MG?26JUN12-08JUL12:25MG?09JUL12-15JUL12:50MG?16JUL12-18AUG12:100MG
     Route: 048
     Dates: start: 20120624, end: 20120818
  9. BURANA [Concomitant]
     Route: 048
     Dates: start: 20120815, end: 20120815
  10. PREDNISOLONE [Concomitant]
     Route: 048
     Dates: start: 20120815
  11. METRONIDAZOLE [Concomitant]
     Route: 042
     Dates: start: 20120815, end: 20120823
  12. INFLIXIMAB [Concomitant]
     Dosage: 17AUG12-375MG IV
     Route: 042
     Dates: start: 20120720, end: 20120720
  13. VEPICOMBIN [Concomitant]
     Route: 048
     Dates: start: 20120807, end: 20120815
  14. ZOLPIDEM [Concomitant]
     Route: 048
     Dates: start: 20120520, end: 20120623

REACTIONS (4)
  - Colitis [Unknown]
  - Diarrhoea [Recovered/Resolved]
  - Infection [Recovered/Resolved]
  - Headache [Recovered/Resolved]
